FAERS Safety Report 4964868-2 (Version None)
Quarter: 2006Q2

REPORT INFORMATION
  Report Type: 
  Country: None (occurrence: None)
  Receive Date: 20060403
  Receipt Date: 20060327
  Transmission Date: 20061013
  Serious: Yes (Other)
  Sender: FDA-Public Use
  Company Number: DEWYE507627MAR06

PATIENT
  Sex: Female

DRUGS (2)
  1. TIGECYCLINE (TIGECYCLINE, INJECTION) [Suspect]
     Indication: ENTEROCOCCAL INFECTION
     Dates: start: 20060101
  2. TACROLIMUS (TACROLIMUS, ,  0) [Suspect]
     Indication: PROPHYLAXIS AGAINST TRANSPLANT REJECTION

REACTIONS (4)
  - DEPRESSED LEVEL OF CONSCIOUSNESS [None]
  - DRUG INTERACTION [None]
  - DYSKINESIA [None]
  - IMMUNOSUPPRESSANT DRUG LEVEL INCREASED [None]
